FAERS Safety Report 21000422 (Version 1)
Quarter: 2022Q2

REPORT INFORMATION
  Report Type: Spontaneous
  Country: US (occurrence: None)
  Receive Date: 20220623
  Receipt Date: 20220623
  Transmission Date: 20220720
  Serious: Yes (Other)
  Sender: FDA-Public Use
  Company Number: 2022A225698

PATIENT
  Age: 75 Year
  Sex: Male
  Weight: 98.4 kg

DRUGS (4)
  1. EVUSHELD [Suspect]
     Active Substance: CILGAVIMAB\TIXAGEVIMAB
     Indication: Immunodeficiency
     Dosage: 150.0MG UNKNOWN
     Route: 030
     Dates: start: 20220528, end: 20220528
  2. CILGAVIMAB [Suspect]
     Active Substance: CILGAVIMAB
     Dosage: 150.0MG UNKNOWN
     Route: 030
     Dates: start: 20220528, end: 20220528
  3. DARATUMUMAB [Concomitant]
     Active Substance: DARATUMUMAB
     Indication: Amyloidosis
     Dosage: 3000 UNIT, MONTHLY
     Route: 058
     Dates: start: 20211002
  4. DEXAMETHASONE [Concomitant]
     Active Substance: DEXAMETHASONE
     Indication: Amyloidosis
     Dosage: UNKNOWN
     Route: 048
     Dates: start: 2020

REACTIONS (1)
  - COVID-19 [Recovering/Resolving]
